FAERS Safety Report 4735856-6 (Version None)
Quarter: 2005Q3

REPORT INFORMATION
  Report Type: 
  Country: None (occurrence: None)
  Receive Date: 20050804
  Receipt Date: 20050804
  Transmission Date: 20060218
  Serious: Yes (Other)
  Sender: FDA-Public Use
  Company Number: None

PATIENT
  Sex: Female
  Weight: 74.8435 kg

DRUGS (1)
  1. EFFEXOR XR [Suspect]
     Indication: MAJOR DEPRESSION
     Dosage: 150 MG ORAL
     Route: 048
     Dates: start: 19980410, end: 20050803

REACTIONS (6)
  - DRUG WITHDRAWAL SYNDROME [None]
  - FEELING COLD [None]
  - NERVOUS SYSTEM DISORDER [None]
  - VERTIGO [None]
  - VISUAL DISTURBANCE [None]
  - VOMITING [None]
